FAERS Safety Report 6559631-5 (Version None)
Quarter: 2010Q1

REPORT INFORMATION
  Report Type: 
  Country: None (occurrence: None)
  Receive Date: 20100129
  Receipt Date: 20090911
  Transmission Date: 20100710
  Serious: No
  Sender: FDA-Public Use
  Company Number: US-ABBOTT-09P-163-0596559-00

PATIENT
  Sex: Female
  Weight: 36.32 kg

DRUGS (1)
  1. HUMIRA [Suspect]
     Indication: CROHN'S DISEASE
     Dosage: 160MG DAY 1
     Dates: start: 20090831

REACTIONS (2)
  - HEADACHE [None]
  - INJECTION SITE PAIN [None]
